FAERS Safety Report 7907546-X (Version None)
Quarter: 2011Q4

REPORT INFORMATION
  Report Type: 
  Country: None (occurrence: None)
  Receive Date: 20111110
  Receipt Date: 20111027
  Transmission Date: 20120403
  Serious: Yes (Hospitalization, Other)
  Sender: FDA-Public Use
  Company Number: PHHY2011TW96167

PATIENT
  Sex: Male

DRUGS (1)
  1. NEORAL [Suspect]
     Indication: IMMUNOSUPPRESSION
     Dosage: 400 MG
     Route: 048
     Dates: start: 20110929

REACTIONS (9)
  - DYSPNOEA [None]
  - SINUS TACHYCARDIA [None]
  - PALPITATIONS [None]
  - CORONARY ARTERY DISEASE [None]
  - VENTRICULAR HYPOKINESIA [None]
  - COLD SWEAT [None]
  - ACUTE MYOCARDIAL INFARCTION [None]
  - NAUSEA [None]
  - CHEST DISCOMFORT [None]
